FAERS Safety Report 16827032 (Version 9)
Quarter: 2021Q3

REPORT INFORMATION
  Report Type: Spontaneous
  Country: JP (occurrence: JP)
  Receive Date: 20190919
  Receipt Date: 20210824
  Transmission Date: 20211014
  Serious: Yes (Death, Hospitalization, Other)
  Sender: FDA-Public Use
  Company Number: JP-ASTRAZENECA-2019SF31685

PATIENT
  Age: 76 Year
  Sex: Male
  Weight: 63 kg

DRUGS (17)
  1. NORVASC [Concomitant]
     Active Substance: AMLODIPINE BESYLATE
     Indication: HYPERTENSION
     Route: 048
     Dates: start: 20190205, end: 20190902
  2. PREDONINE [Concomitant]
     Active Substance: PREDNISOLONE
     Route: 048
  3. PREDONINE [Concomitant]
     Active Substance: PREDNISOLONE
     Route: 048
     Dates: start: 20190208, end: 20190311
  4. SODIUM RABEPRAZOLE [Concomitant]
     Active Substance: RABEPRAZOLE SODIUM
     Route: 065
  5. BAKTAR [Concomitant]
     Active Substance: SULFAMETHOXAZOLE\TRIMETHOPRIM
     Route: 048
  6. MEDICON [Concomitant]
     Route: 065
  7. TELMISARTAN. [Concomitant]
     Active Substance: TELMISARTAN
     Indication: HYPERTENSION
     Route: 048
     Dates: start: 20190205, end: 20190902
  8. ROZEREM [Concomitant]
     Active Substance: RAMELTEON
     Route: 065
  9. CIPROXAN [Concomitant]
     Active Substance: CIPROFLOXACIN
     Route: 065
  10. RESPLEN [Concomitant]
     Active Substance: EPRAZINONE
     Route: 065
  11. PREDONINE [Concomitant]
     Active Substance: PREDNISOLONE
     Route: 048
     Dates: start: 20190312
  12. MAGNESIUM OXIDE. [Concomitant]
     Active Substance: MAGNESIUM OXIDE
     Route: 065
  13. SOLU?MEDROL [Concomitant]
     Active Substance: METHYLPREDNISOLONE SODIUM SUCCINATE
     Route: 065
  14. LIXIANA OD [Concomitant]
     Active Substance: EDOXABAN TOSYLATE
     Indication: ATRIAL FIBRILLATION
     Route: 048
     Dates: end: 20190821
  15. FEBURIC [Concomitant]
     Active Substance: FEBUXOSTAT
     Indication: HYPERURICAEMIA
     Route: 048
     Dates: end: 20190902
  16. IMFINZI [Suspect]
     Active Substance: DURVALUMAB
     Indication: NON-SMALL CELL LUNG CANCER
     Route: 041
     Dates: start: 20190312, end: 20190730
  17. FLUITRAN [Concomitant]
     Indication: HYPERTENSION
     Route: 048
     Dates: end: 20180915

REACTIONS (5)
  - Pulmonary alveolar haemorrhage [Fatal]
  - Pneumonia [Fatal]
  - Oxygen saturation abnormal [Fatal]
  - Condition aggravated [Fatal]
  - Respiratory failure [Unknown]

NARRATIVE: CASE EVENT DATE: 2019
